FAERS Safety Report 5710706-X (Version None)
Quarter: 2008Q2

REPORT INFORMATION
  Report Type: 
  Country: None (occurrence: None)
  Receive Date: 20080421
  Receipt Date: 20080410
  Transmission Date: 20081010
  Serious: Yes (Other)
  Sender: FDA-Public Use
  Company Number: US-WYE-H03556108

PATIENT

DRUGS (2)
  1. TORISEL [Suspect]
     Indication: RENAL CELL CARCINOMA
     Dosage: 25 MG
     Route: 042
     Dates: start: 20080408, end: 20080408
  2. TORISEL [Suspect]
     Dosage: UNKNOWN
     Route: 042
     Dates: start: 20080410

REACTIONS (3)
  - BACK PAIN [None]
  - BLOOD PRESSURE INCREASED [None]
  - OXYGEN SATURATION DECREASED [None]
